FAERS Safety Report 9411487 (Version 1)
Quarter: 2013Q3

REPORT INFORMATION
  Report Type: Report from Study
  Country: AR (occurrence: AR)
  Receive Date: 20130722
  Receipt Date: 20130722
  Transmission Date: 20140515
  Serious: Yes (Hospitalization, Other)
  Sender: FDA-Public Use
  Company Number: AR-ROCHE-1250273

PATIENT
  Sex: Female

DRUGS (1)
  1. RANIBIZUMAB [Suspect]
     Indication: BLINDNESS
     Dosage: 1 DF QMO
     Route: 050
     Dates: start: 2011

REACTIONS (3)
  - Cerebrovascular accident [Recovered/Resolved]
  - Fall [Unknown]
  - Pain in extremity [Unknown]
